FAERS Safety Report 8122338-7 (Version None)
Quarter: 2012Q1

REPORT INFORMATION
  Report Type: 
  Country: None (occurrence: None)
  Receive Date: 20120208
  Receipt Date: 20120127
  Transmission Date: 20120608
  Serious: Yes (Hospitalization, Other)
  Sender: FDA-Public Use
  Company Number: US-JNJFOC-20120201826

PATIENT
  Age: 58 Year
  Sex: Female
  Weight: 73.92 kg

DRUGS (13)
  1. CYCLOBENZAPRINE [Concomitant]
  2. PREDNISONE [Concomitant]
  3. IRON [Concomitant]
  4. METOPROLOL [Concomitant]
  5. MOTRIN [Suspect]
     Indication: PRODUCT USED FOR UNKNOWN INDICATION
     Route: 065
  6. MULTI-VITAMINS [Concomitant]
  7. CALTRATE [Concomitant]
  8. ENBREL [Suspect]
     Indication: RHEUMATOID ARTHRITIS
     Dates: start: 20060112
  9. PROVENTIL [Concomitant]
  10. ULTRACET [Concomitant]
  11. ASCORBIC ACID [Concomitant]
  12. PULMICORT-100 [Concomitant]
  13. VITAMIN D [Concomitant]

REACTIONS (2)
  - GASTROINTESTINAL HAEMORRHAGE [None]
  - ARTERIOVENOUS MALFORMATION [None]
